FAERS Safety Report 8806786 (Version 1)
Quarter: 2012Q4

REPORT INFORMATION
  Report Type: 
  Country: US (occurrence: US)
  Receive Date: 20120925
  Receipt Date: 20120925
  Transmission Date: 20130627
  Serious: Yes (Death, Other)
  Sender: FDA-Public Use
  Company Number: US-ROCHE-1097555

PATIENT
  Sex: Male

DRUGS (1)
  1. AVASTIN [Suspect]
     Indication: MALIGNANT SOFT TISSUE NEOPLASM
     Dosage: one dose
     Route: 065
     Dates: start: 20070910

REACTIONS (3)
  - Metastatic neoplasm [Fatal]
  - Pleural sarcoma [Unknown]
  - Haemorrhage [Unknown]
